FAERS Safety Report 17461033 (Version 2)
Quarter: 2020Q4

REPORT INFORMATION
  Report Type: Spontaneous
  Country: BR (occurrence: BR)
  Receive Date: 20200226
  Receipt Date: 20201104
  Transmission Date: 20210113
  Serious: Yes (Other)
  Sender: FDA-Public Use
  Company Number: BR-ABBVIE-20P-020-3254439-00

PATIENT
  Age: 53 Year
  Sex: Female

DRUGS (9)
  1. TOPIRAMATE. [Concomitant]
     Active Substance: TOPIRAMATE
     Indication: HEADACHE
  2. TOPIRAMATE. [Concomitant]
     Active Substance: TOPIRAMATE
     Indication: ANTICONVULSANT DRUG LEVEL ABNORMAL
  3. DEPAKOTE ER [Suspect]
     Active Substance: DIVALPROEX SODIUM
     Indication: MIGRAINE
     Dosage: TAKEN DURING THE DAY
     Route: 048
  4. BROMAZEPAM [Concomitant]
     Active Substance: BROMAZEPAM
     Indication: PRODUCT USED FOR UNKNOWN INDICATION
     Dosage: ADMMINISTERED AT NIGHT
  5. ALPRAZOLAM. [Concomitant]
     Active Substance: ALPRAZOLAM
     Indication: PRODUCT USED FOR UNKNOWN INDICATION
  6. DEPAKOTE ER [Suspect]
     Active Substance: DIVALPROEX SODIUM
     Route: 048
     Dates: start: 201909
  7. ANTIHYPERTENSIVES [Concomitant]
     Active Substance: UNSPECIFIED INGREDIENT
     Indication: HYPERTENSION
     Dosage: USE FOR ABOUT 5 YEARS
  8. PAROXETINE. [Concomitant]
     Active Substance: PAROXETINE
     Indication: PRODUCT USED FOR UNKNOWN INDICATION
     Dosage: ADMINISTERED IN THE MORNING
     Dates: start: 202008
  9. BETAHISTINE HYDROCHLORIDE [Concomitant]
     Active Substance: BETAHISTINE HYDROCHLORIDE
     Indication: LABYRINTHITIS

REACTIONS (19)
  - Pain [Unknown]
  - Head titubation [Not Recovered/Not Resolved]
  - Product complaint [Unknown]
  - Epilepsy [Not Recovered/Not Resolved]
  - Wrong technique in product usage process [Unknown]
  - Alopecia [Not Recovered/Not Resolved]
  - Labyrinthitis [Unknown]
  - Migraine [Not Recovered/Not Resolved]
  - Malaise [Not Recovered/Not Resolved]
  - Weight increased [Unknown]
  - Drug ineffective [Unknown]
  - Tinnitus [Unknown]
  - Tremor [Recovered/Resolved]
  - Restlessness [Unknown]
  - Nightmare [Unknown]
  - Headache [Unknown]
  - Dizziness [Unknown]
  - Hypertension [Unknown]
  - Tremor [Not Recovered/Not Resolved]

NARRATIVE: CASE EVENT DATE: 201909
